FAERS Safety Report 24075398 (Version 1)
Quarter: 2024Q3

REPORT INFORMATION
  Report Type: Spontaneous
  Country: US (occurrence: US)
  Receive Date: 20240710
  Receipt Date: 20240710
  Transmission Date: 20241016
  Serious: No
  Sender: SANDOZ
  Company Number: US-SANDOZ-SDZ2024US063843

PATIENT

DRUGS (11)
  1. CYCLOSPORINE [Suspect]
     Active Substance: CYCLOSPORINE
     Indication: Neurodermatitis
     Dosage: UNK
     Route: 065
  2. CYCLOSPORINE [Suspect]
     Active Substance: CYCLOSPORINE
     Indication: Eczema
  3. METHOTREXATE [Suspect]
     Active Substance: METHOTREXATE
     Indication: Product used for unknown indication
     Dosage: UNK
     Route: 065
  4. BUTORPHANOL TARTRATE [Concomitant]
     Active Substance: BUTORPHANOL TARTRATE
     Indication: Product used for unknown indication
     Dosage: UNK, QN
     Route: 065
  5. DUPIXENT [Concomitant]
     Active Substance: DUPILUMAB
     Indication: Eczema
     Dosage: UNK
     Route: 065
  6. DUPIXENT [Concomitant]
     Active Substance: DUPILUMAB
     Indication: Neurodermatitis
  7. GABAPENTIN [Concomitant]
     Active Substance: GABAPENTIN
     Indication: Pruritus
     Dosage: 400 MG, BID
     Route: 065
  8. METHOTREXATE [Concomitant]
     Active Substance: METHOTREXATE
     Indication: Product used for unknown indication
     Dosage: UNK
     Route: 048
  9. NEMOLIZUMAB [Concomitant]
     Active Substance: NEMOLIZUMAB
     Indication: Product used for unknown indication
     Dosage: UNK
     Route: 065
  10. RINVOQ [Concomitant]
     Active Substance: UPADACITINIB
     Indication: Product used for unknown indication
     Dosage: UNK
     Route: 065
  11. WEGOVY [Concomitant]
     Active Substance: SEMAGLUTIDE
     Indication: Weight
     Dosage: UNK
     Route: 065

REACTIONS (1)
  - Treatment failure [Unknown]
